FAERS Safety Report 7770869-1 (Version None)
Quarter: 2011Q3

REPORT INFORMATION
  Report Type: 
  Country: None (occurrence: None)
  Receive Date: 20110922
  Receipt Date: 20110711
  Transmission Date: 20111222
  Serious: No
  Sender: FDA-Public Use
  Company Number: US-ASTRAZENECA-2011SE16261

PATIENT
  Age: 48 Year
  Sex: Female

DRUGS (9)
  1. SEROQUEL [Suspect]
     Indication: SLEEP DISORDER
     Route: 048
     Dates: start: 20100801, end: 20110316
  2. SEROQUEL [Suspect]
     Indication: BIPOLAR DISORDER
     Route: 048
     Dates: start: 20100801, end: 20110316
  3. SEROQUEL [Suspect]
     Route: 048
  4. SEROQUEL [Suspect]
     Route: 048
  5. ESTROGEN REPLACEMENT MEDICATION [Concomitant]
  6. LEXAPRO [Concomitant]
  7. SEROQUEL [Suspect]
     Route: 048
  8. SEROQUEL [Suspect]
     Route: 048
  9. ADDERALL 10 [Concomitant]

REACTIONS (11)
  - NERVOUSNESS [None]
  - DRUG DOSE OMISSION [None]
  - FATIGUE [None]
  - HYPERHIDROSIS [None]
  - HOT FLUSH [None]
  - DISTURBANCE IN ATTENTION [None]
  - AGITATION [None]
  - BURNING SENSATION [None]
  - MALAISE [None]
  - INSOMNIA [None]
  - OFF LABEL USE [None]
